FAERS Safety Report 20311315 (Version 2)
Quarter: 2022Q1

REPORT INFORMATION
  Report Type: Spontaneous
  Country: US (occurrence: US)
  Receive Date: 20220107
  Receipt Date: 20220304
  Transmission Date: 20220423
  Serious: No
  Sender: FDA-Public Use
  Company Number: US-009507513-2201USA001260

PATIENT
  Sex: Female
  Weight: 93.3 kg

DRUGS (6)
  1. KEYTRUDA [Suspect]
     Active Substance: PEMBROLIZUMAB
     Dosage: STRENGHT: 100 MG/4 ML VIAL
  2. LENVATINIB MESYLATE [Suspect]
     Active Substance: LENVATINIB MESYLATE
     Indication: Renal cancer
     Dosage: 20 MILLIGRAM, QD
     Route: 048
     Dates: start: 20211215
  3. CARVEDILOL [Suspect]
     Active Substance: CARVEDILOL
  4. NEXIUM I.V. [Suspect]
     Active Substance: ESOMEPRAZOLE SODIUM
  5. GABAPENTIN [Suspect]
     Active Substance: GABAPENTIN
  6. FLUTICASONE PROPIONATE [Suspect]
     Active Substance: FLUTICASONE PROPIONATE
     Dosage: UNK

REACTIONS (3)
  - Therapy partial responder [Unknown]
  - Blood pressure increased [Unknown]
  - Adverse event [Unknown]

NARRATIVE: CASE EVENT DATE: 20220201
